FAERS Safety Report 8529655 (Version 3)
Quarter: 2012Q4

REPORT INFORMATION
  Report Type: 
  Country: CH (occurrence: CH)
  Receive Date: 20120425
  Receipt Date: 20120922
  Transmission Date: 20130627
  Serious: Yes (Hospitalization)
  Sender: FDA-Public Use
  Company Number: CH-ABBOTT-12P-151-0926494-00

PATIENT
  Age: 35 Year
  Sex: Female

DRUGS (3)
  1. KALETRA TABLETS [Suspect]
     Indication: HIV INFECTION
     Dosage: 3 in 1 D, Dose schema 1-0-2
     Route: 048
     Dates: start: 201201, end: 20120209
  2. KALETRA TABLETS [Suspect]
     Dates: start: 201204
  3. VIRAMUNE [Suspect]
     Indication: HIV INFECTION
     Route: 048
     Dates: start: 201201, end: 20120207

REACTIONS (13)
  - Drug reaction with eosinophilia and systemic symptoms [Recovering/Resolving]
  - Hepatocellular injury [Recovering/Resolving]
  - Rash [Recovering/Resolving]
  - Transaminases increased [Recovering/Resolving]
  - Pyrexia [Recovering/Resolving]
  - Fatigue [Recovering/Resolving]
  - Pruritus [Recovering/Resolving]
  - Headache [Recovering/Resolving]
  - Pain in extremity [Unknown]
  - Nausea [Recovering/Resolving]
  - Pyrexia [Recovering/Resolving]
  - Headache [Recovering/Resolving]
  - Pruritus [Recovering/Resolving]
